FAERS Safety Report 21048789 (Version 1)
Quarter: 2022Q3

REPORT INFORMATION
  Report Type: Spontaneous
  Country: FR (occurrence: FR)
  Receive Date: 20220706
  Receipt Date: 20220706
  Transmission Date: 20221026
  Serious: Yes (Hospitalization)
  Sender: FDA-Public Use
  Company Number: FR-ANIPHARMA-2022-FR-000116

PATIENT
  Age: 73 Year
  Sex: Female
  Weight: 65 kg

DRUGS (1)
  1. ANASTROZOLE [Suspect]
     Active Substance: ANASTROZOLE
     Indication: Product used for unknown indication
     Dosage: 1 DF DAILY
     Route: 048
     Dates: start: 202102

REACTIONS (1)
  - Retroperitoneal fibrosis [Not Recovered/Not Resolved]

NARRATIVE: CASE EVENT DATE: 20220501
